FAERS Safety Report 25879268 (Version 1)
Quarter: 2025Q4

REPORT INFORMATION
  Report Type: Spontaneous
  Country: GB (occurrence: GB)
  Receive Date: 20251003
  Receipt Date: 20251003
  Transmission Date: 20260118
  Serious: Yes (Disabling)
  Sender: PFIZER
  Company Number: GB-MHRA-TPP5936913C19690425YC1759228588582

PATIENT
  Age: 82 Year
  Sex: Female
  Weight: 68 kg

DRUGS (29)
  1. RIMEGEPANT [Suspect]
     Active Substance: RIMEGEPANT
     Indication: Migraine
     Dosage: USE AS DIRECTED BY NEUROLOGIST
     Route: 048
     Dates: start: 20250715, end: 20250814
  2. FROVATRIPTAN [Concomitant]
     Active Substance: FROVATRIPTAN
     Indication: Ill-defined disorder
     Dosage: TAKE ONE TABLET AT ONSET OF HEADACHE
     Dates: start: 20250805
  3. FROVATRIPTAN [Concomitant]
     Active Substance: FROVATRIPTAN
     Indication: Headache
  4. FERROUS SULFATE [Concomitant]
     Active Substance: FERROUS SULFATE
     Indication: Ill-defined disorder
     Dosage: TAKE ONE ONCE DAILY
     Dates: start: 20250808
  5. INSULIN GLARGINE [Concomitant]
     Active Substance: INSULIN GLARGINE
     Indication: Ill-defined disorder
     Dosage: USE AS DIRECTED
     Dates: start: 20250115
  6. AQUEOUS [SOFT SOAP] [Concomitant]
     Indication: Ill-defined disorder
     Dosage: USE FOR WASHING AFTER USING THE TOILET
     Dates: start: 20250115
  7. BALNEUM [PARAFFIN, LIQUID] [Concomitant]
     Indication: Ill-defined disorder
     Dosage: 2X/DAY, AS REQUIRED TO DRY
     Dates: start: 20250115
  8. CLOTRIMAZOLE [Concomitant]
     Active Substance: CLOTRIMAZOLE
     Indication: Ill-defined disorder
     Dosage: 2X/DAY
     Dates: start: 20250115
  9. CIPROFLOXACIN [Concomitant]
     Active Substance: CIPROFLOXACIN
     Indication: Ill-defined disorder
     Dosage: 2X/DAY, FOR 2 WEEKS IN EVERY 6 WEEK
     Dates: start: 20250115
  10. DIAZEPAM [Concomitant]
     Active Substance: DIAZEPAM
     Indication: Ill-defined disorder
     Dosage: AS NEEDED
     Dates: start: 20250115
  11. ESTRIOL [Concomitant]
     Active Substance: ESTRIOL
     Indication: Ill-defined disorder
     Dosage: APPLY AT NIGHT, 2X/WEEK
     Dates: start: 20250115
  12. HYDROXOCOBALAMIN [Concomitant]
     Active Substance: HYDROXOCOBALAMIN
     Indication: Ill-defined disorder
     Dosage: 1 MG, EVERY 6 WEEKS
     Route: 030
     Dates: start: 20250115, end: 20250804
  13. HYLO NIGHT [Concomitant]
     Indication: Ill-defined disorder
     Dosage: 1X/DAY, AT NIGHT TO BOTH EYES
     Dates: start: 20250115
  14. HYLO FORTE [Concomitant]
     Indication: Ill-defined disorder
     Dosage: ONE DROP TWO HOURLY TO BOTH EYES
     Dates: start: 20250115
  15. IBANDRONIC ACID [Concomitant]
     Active Substance: IBANDRONIC ACID
     Indication: Ill-defined disorder
     Dosage: TAKE ONE MONTHLY
     Dates: start: 20250115
  16. IBUPROFEN [Concomitant]
     Active Substance: IBUPROFEN
     Indication: Ill-defined disorder
     Dosage: 3X/DAY, APPLY TO AFFECTED AREA
     Dates: start: 20250115
  17. MORPHINE SULFATE [Concomitant]
     Active Substance: MORPHINE SULFATE
     Indication: Ill-defined disorder
     Dosage: TAKE ONE EVERY 4 HRS
     Dates: start: 20250115
  18. MORPHINE SULFATE [Concomitant]
     Active Substance: MORPHINE SULFATE
     Indication: Pain
  19. OILATUM [PARAFFIN NOS] [Concomitant]
     Indication: Ill-defined disorder
     Dosage: USE AS NEEDED
     Dates: start: 20250115
  20. OMEPRAZOLE [Concomitant]
     Active Substance: OMEPRAZOLE
     Indication: Ill-defined disorder
     Dosage: TAKE TWO ONCE DAILY
     Dates: start: 20250115
  21. ACETAMINOPHEN [Concomitant]
     Active Substance: ACETAMINOPHEN
     Indication: Ill-defined disorder
     Dosage: TAKE 1 OR 2 4 TIMES/DAY AS REQUIRED
     Dates: start: 20250115
  22. PEPPERMINT OIL [Concomitant]
     Active Substance: PEPPERMINT OIL
     Indication: Ill-defined disorder
     Dosage: 3X/DAY, TAKE TWO CAPSULES
     Dates: start: 20250115
  23. PREDNISOLONE [Concomitant]
     Active Substance: PREDNISOLONE
     Indication: Ill-defined disorder
     Dosage: USE AS DIRECTED
     Dates: start: 20250115
  24. PROCHLORPERAZINE [Concomitant]
     Active Substance: PROCHLORPERAZINE
     Indication: Ill-defined disorder
     Dosage: USE AS DIRECTED
     Dates: start: 20250115
  25. SALIVEZE [Concomitant]
     Indication: Ill-defined disorder
     Dosage: USE AS DIRECTED
     Dates: start: 20250115
  26. ZOLMITRIPTAN [Concomitant]
     Active Substance: ZOLMITRIPTAN
     Indication: Ill-defined disorder
     Dosage: TAKE ONE AS DIRECTED
     Dates: start: 20250115, end: 20250909
  27. HYDROCORTISONE [Concomitant]
     Active Substance: HYDROCORTISONE
     Indication: Ill-defined disorder
     Dosage: 2X/DAY, TAKE ONE IN THE MORNING AND ONE IN THE EVENING
     Dates: start: 20250507
  28. PROMETHAZINE HYDROCHLORIDE [Concomitant]
     Active Substance: PROMETHAZINE HYDROCHLORIDE
     Indication: Ill-defined disorder
     Dosage: TAKE ONE OR TWO DAILY
     Dates: start: 20250617
  29. CALCI D [Concomitant]
     Indication: Ill-defined disorder
     Dosage: TAKE ONE DAILY
     Dates: start: 20250723, end: 20250925

REACTIONS (3)
  - Asthenia [Recovered/Resolved]
  - Vision blurred [Recovered/Resolved]
  - Fatigue [Recovered/Resolved]
